FAERS Safety Report 22285323 (Version 1)
Quarter: 2023Q2

REPORT INFORMATION
  Report Type: Spontaneous
  Country: US (occurrence: US)
  Receive Date: 20230504
  Receipt Date: 20230504
  Transmission Date: 20230722
  Serious: Yes (Other)
  Sender: FDA-Public Use
  Company Number: US-COOLA-2023-US-010511

PATIENT
  Sex: Female

DRUGS (2)
  1. AVOBENZONE\HOMOSALATE\OCTISALATE [Suspect]
     Active Substance: AVOBENZONE\HOMOSALATE\OCTISALATE
     Indication: Product used for unknown indication
     Route: 061
  2. COOLA CLASSIC BODY SPF 50 FRAGRANCE FREE [Suspect]
     Active Substance: AVOBENZONE\HOMOSALATE\OCTISALATE\OCTOCRYLENE
     Indication: Product used for unknown indication
     Route: 061

REACTIONS (4)
  - Urticaria [Unknown]
  - Swelling face [Unknown]
  - Rash [Unknown]
  - Angioedema [Unknown]
